FAERS Safety Report 8829501 (Version 1)
Quarter: 2012Q4

REPORT INFORMATION
  Report Type: Spontaneous
  Country: US (occurrence: None)
  Receive Date: 20121005
  Receipt Date: 20121005
  Transmission Date: 20130627
  Serious: Yes (Hospitalization)
  Sender: FDA-Public Use
  Company Number: None

PATIENT
  Sex: Male
  Weight: 88.2 kg

DRUGS (6)
  1. CYTARABINE [Suspect]
     Dosage: Patient was on Hydrea on Day 1.
  2. DAUNORUBICIN [Suspect]
  3. METHOTREXATE [Suspect]
  4. METHYLPREDNISOLONE [Suspect]
     Dosage: 2190.75 mg Prednisone PO
  5. PEG-L-ASPARAGINASE [Suspect]
     Dosage: 5153 unit
  6. VINCRISTINE SULFATE [Suspect]

REACTIONS (13)
  - Asthenia [None]
  - Epistaxis [None]
  - Dyspnoea exertional [None]
  - Headache [None]
  - Bone pain [None]
  - Middle insomnia [None]
  - Hypoaesthesia [None]
  - Paraesthesia [None]
  - Gingival bleeding [None]
  - Stomatitis [None]
  - Pyrexia [None]
  - Chills [None]
  - Blood fibrinogen decreased [None]
